FAERS Safety Report 17721602 (Version 4)
Quarter: 2021Q2

REPORT INFORMATION
  Report Type: Spontaneous
  Country: US (occurrence: US)
  Receive Date: 20200429
  Receipt Date: 20210420
  Transmission Date: 20210716
  Serious: Yes (Hospitalization)
  Sender: FDA-Public Use
  Company Number: US-SA-2020SA109899

PATIENT
  Age: 11 Year
  Sex: Female

DRUGS (2)
  1. CAPRELSA [Suspect]
     Active Substance: VANDETANIB
     Indication: THYROID CANCER
     Dosage: 100 MG, QD
     Route: 048
     Dates: start: 20191224
  2. CAPRELSA [Suspect]
     Active Substance: VANDETANIB
     Dosage: UNK
     Dates: start: 20200428

REACTIONS (9)
  - Off label use [Unknown]
  - Acne [Unknown]
  - Hospitalisation [Unknown]
  - Skin irritation [Unknown]
  - Surgery [Unknown]
  - Diarrhoea [Unknown]
  - Rash [Unknown]
  - Product dose omission issue [Unknown]
  - Dry skin [Unknown]

NARRATIVE: CASE EVENT DATE: 20200417
